FAERS Safety Report 23693857 (Version 1)
Quarter: 2024Q2

REPORT INFORMATION
  Report Type: Report from Study
  Country: HN (occurrence: None)
  Receive Date: 20240401
  Receipt Date: 20240401
  Transmission Date: 20240716
  Serious: Yes (Life-Threatening, Hospitalization)
  Sender: FDA-Public Use
  Company Number: 2024A076770

PATIENT
  Sex: Female

DRUGS (1)
  1. XIGDUO XR [Suspect]
     Active Substance: DAPAGLIFLOZIN PROPANEDIOL\METFORMIN HYDROCHLORIDE
     Indication: Diabetes mellitus
     Dosage: 10 MG/1000 DAILY PO
     Route: 048
     Dates: end: 202401

REACTIONS (6)
  - Haemoglobin decreased [Recovering/Resolving]
  - Chronic gastritis [Recovering/Resolving]
  - Ulcer [Recovering/Resolving]
  - Haematochezia [Recovering/Resolving]
  - Haematemesis [Recovering/Resolving]
  - Mouth haemorrhage [Recovering/Resolving]
